FAERS Safety Report 10374058 (Version 2)
Quarter: 2014Q4

REPORT INFORMATION
  Report Type: Report from Study
  Country: CA (occurrence: CA)
  Receive Date: 20140810
  Receipt Date: 20141121
  Transmission Date: 20150528
  Serious: Yes (Other)
  Sender: FDA-Public Use
  Company Number: PHHY2014CA091262

PATIENT
  Age: 28 Year
  Sex: Male

DRUGS (3)
  1. CLOZARIL [Suspect]
     Active Substance: CLOZAPINE
     Dosage: 450 MG, ,(150 MG Q AM AND 300 MG Q HS)
     Route: 048
     Dates: start: 20140731
  2. CELEXA [Concomitant]
     Active Substance: CITALOPRAM HYDROBROMIDE
     Dosage: 40 MG, DAILY
  3. CLOZARIL [Suspect]
     Active Substance: CLOZAPINE
     Indication: SCHIZOPHRENIA
     Dosage: UKN
     Route: 048
     Dates: start: 20120201

REACTIONS (8)
  - Thyroid disorder [Recovered/Resolved]
  - Sinus tachycardia [Unknown]
  - Electrocardiogram T wave amplitude decreased [Unknown]
  - Fatigue [Unknown]
  - Tachycardia [Recovered/Resolved]
  - Electrocardiogram QRS complex abnormal [Unknown]
  - Electrocardiogram QT prolonged [Recovered/Resolved]
  - Cardiac disorder [Recovered/Resolved]

NARRATIVE: CASE EVENT DATE: 20140506
